FAERS Safety Report 22621390 (Version 1)
Quarter: 2023Q2

REPORT INFORMATION
  Report Type: Spontaneous
  Country: US (occurrence: None)
  Receive Date: 20230618
  Receipt Date: 20230618
  Transmission Date: 20230722
  Serious: Yes (Disabling)
  Sender: FDA-Public Use
  Company Number: None

PATIENT
  Age: 84 Year
  Sex: Female
  Weight: 60.75 kg

DRUGS (10)
  1. ARAVA [Suspect]
     Active Substance: LEFLUNOMIDE
     Indication: Polymyalgia rheumatica
     Dosage: OTHER QUANTITY : 1 TABLET(S);?FREQUENCY : DAILY;?
     Route: 048
     Dates: start: 20230213, end: 20230410
  2. PREDNISONE [Suspect]
     Active Substance: PREDNISONE
  3. QUESTRAN [Suspect]
     Active Substance: CHOLESTYRAMINE
  4. PREDNISONE [Concomitant]
     Active Substance: PREDNISONE
  5. PEPCID [Concomitant]
     Active Substance: FAMOTIDINE
  6. PRILOSEC [Concomitant]
     Active Substance: OMEPRAZOLE MAGNESIUM
  7. Ca supplement + D3 [Concomitant]
  8. MELATONIN [Concomitant]
     Active Substance: MELATONIN
  9. FISH OIL [Concomitant]
     Active Substance: FISH OIL
  10. TYLENOL [Concomitant]
     Active Substance: ACETAMINOPHEN

REACTIONS (10)
  - Eye disorder [None]
  - Upper respiratory tract infection [None]
  - Skin disorder [None]
  - Gastrointestinal disorder [None]
  - Back pain [None]
  - Blister [None]
  - Rhinitis [None]
  - Alopecia [None]
  - Abnormal faeces [None]
  - Musculoskeletal stiffness [None]

NARRATIVE: CASE EVENT DATE: 20230410
